FAERS Safety Report 4523531-2 (Version None)
Quarter: 2004Q4

REPORT INFORMATION
  Report Type: 
  Country: None (occurrence: None)
  Receive Date: 20041209
  Receipt Date: 20041209
  Transmission Date: 20050328
  Serious: No
  Sender: FDA-Public Use
  Company Number: None

PATIENT
  Age: 52 Year
  Sex: Female

DRUGS (2)
  1. PROMETHAZINE [Suspect]
     Indication: NAUSEA
     Dosage: 12.5 MG IVP PRN
     Route: 042
     Dates: start: 20031020
  2. PROMETHAZINE [Suspect]
     Indication: VOMITING
     Dosage: 12.5 MG IVP PRN
     Route: 042
     Dates: start: 20031020

REACTIONS (4)
  - INFUSION RELATED REACTION [None]
  - PAIN [None]
  - PHLEBITIS [None]
  - VASCULITIS [None]
